FAERS Safety Report 25500436 (Version 1)
Quarter: 2025Q3

REPORT INFORMATION
  Report Type: Spontaneous
  Country: IN (occurrence: IN)
  Receive Date: 20250701
  Receipt Date: 20250701
  Transmission Date: 20251020
  Serious: Yes (Other)
  Sender: NIVAGEN PHARMACEUTICALS INC
  Company Number: IN-NPI-000121

PATIENT
  Sex: Female

DRUGS (1)
  1. NEOSTIGMINE METHYLSULFATE [Suspect]
     Active Substance: NEOSTIGMINE METHYLSULFATE
     Indication: Ocular myasthenia
     Dosage: TABLETS
     Route: 048

REACTIONS (1)
  - Parkinson^s disease [Recovered/Resolved with Sequelae]
